FAERS Safety Report 18706718 (Version 1)
Quarter: 2021Q1

REPORT INFORMATION
  Report Type: Spontaneous
  Country: NL (occurrence: NL)
  Receive Date: 20210106
  Receipt Date: 20210106
  Transmission Date: 20210419
  Serious: Yes (Other)
  Sender: FDA-Public Use
  Company Number: NL-CASPER PHARMA LLC-2020CAS000721

PATIENT
  Age: 73 Year
  Sex: Female

DRUGS (1)
  1. BISMUTH, METRONIDAZOLE, TETRACYCLIN [Suspect]
     Active Substance: BISMUTH SUBSALICYLATE\METRONIDAZOLE\TETRACYCLINE HYDROCHLORIDE
     Indication: PRODUCT USED FOR UNKNOWN INDICATION
     Dosage: 1500 MG  METRONIDAZOLE, 2000 MG TETRACYCLINE, 480MG BISMUTH
     Route: 065

REACTIONS (1)
  - Pancreatitis acute [Recovered/Resolved]
